FAERS Safety Report 8910880 (Version 1)
Quarter: 2012Q4

REPORT INFORMATION
  Report Type: 
  Country: ES (occurrence: ES)
  Receive Date: 20121115
  Receipt Date: 20121115
  Transmission Date: 20130627
  Serious: Yes (Hospitalization)
  Sender: FDA-Public Use
  Company Number: ES-ELI_LILLY_AND_COMPANY-ES201211002364

PATIENT
  Sex: Female
  Weight: 62 kg

DRUGS (9)
  1. FORSTEO [Suspect]
     Indication: OSTEOPOROSIS
     Dosage: 20 ug, qd
     Route: 058
     Dates: start: 20111028
  2. ESCITALOPRAM [Concomitant]
     Indication: DEPRESSION
     Dosage: UNK, qd
  3. OMEPRAZOL [Concomitant]
     Indication: PROPHYLAXIS
     Dosage: UNK, qd
  4. ENANTYUM [Concomitant]
     Indication: ANALGESIC THERAPY
  5. ZALDIAR [Concomitant]
     Indication: ANALGESIC THERAPY
  6. ALPRAZOLAM [Concomitant]
     Indication: INSOMNIA
  7. CLEXANE                                 /NET/ [Concomitant]
  8. CIPROFLOXACIN [Concomitant]
  9. TRIPTIZOL [Concomitant]
     Dosage: UNK, tid

REACTIONS (2)
  - Stress fracture [Unknown]
  - Stress fracture [Recovered/Resolved]
